FAERS Safety Report 6596582-4 (Version None)
Quarter: 2010Q1

REPORT INFORMATION
  Report Type: 
  Country: None (occurrence: None)
  Receive Date: 20100222
  Receipt Date: 20100222
  Transmission Date: 20100710
  Serious: Yes (Other)
  Sender: FDA-Public Use
  Company Number: None

PATIENT
  Age: 34 Year
  Sex: Female
  Weight: 72.1219 kg

DRUGS (5)
  1. LYRICA [Suspect]
     Indication: FIBROMYALGIA
     Dosage: 75MG 2 TIMES A DAY PO
     Route: 048
     Dates: start: 20091103, end: 20100101
  2. LYRICA [Suspect]
     Indication: MUSCULOSKELETAL PAIN
     Dosage: 75MG 2 TIMES A DAY PO
     Route: 048
     Dates: start: 20091103, end: 20100101
  3. LYRICA [Suspect]
     Indication: NECK PAIN
     Dosage: 75MG 2 TIMES A DAY PO
     Route: 048
     Dates: start: 20091103, end: 20100101
  4. LYRICA [Concomitant]
  5. EIBROIDMYALGA [Concomitant]

REACTIONS (4)
  - FALL [None]
  - FEELING ABNORMAL [None]
  - LOCAL SWELLING [None]
  - PAIN [None]
